FAERS Safety Report 12465794 (Version 1)
Quarter: 2016Q2

REPORT INFORMATION
  Report Type: Spontaneous
  Country: JP (occurrence: JP)
  Receive Date: 20160614
  Receipt Date: 20160614
  Transmission Date: 20160815
  Serious: Yes (Other)
  Sender: FDA-Public Use
  Company Number: PHJP1900JP000870

PATIENT
  Age: 45 Year
  Sex: Female

DRUGS (10)
  1. SANDIMMUN [Suspect]
     Active Substance: CYCLOSPORINE
     Dosage: 280 MG, QD
     Route: 048
     Dates: start: 19890512, end: 19890711
  2. TIMOPTOL [Concomitant]
     Active Substance: TIMOLOL
     Indication: PRODUCT USED FOR UNKNOWN INDICATION
     Dosage: 2 DF, QD
     Route: 031
     Dates: start: 19880707
  3. PIVALEPHRINE [Concomitant]
     Active Substance: DIPIVEFRIN HYDROCHLORIDE
     Indication: PRODUCT USED FOR UNKNOWN INDICATION
     Dosage: 2 DF, QD
     Route: 031
     Dates: start: 19880707
  4. NIFLAN [Concomitant]
     Indication: BEHCET^S SYNDROME
     Dosage: 4 DF, QD
     Route: 031
     Dates: start: 19880707
  5. SANDIMMUN [Suspect]
     Active Substance: CYCLOSPORINE
     Indication: BEHCET^S SYNDROME
     Dosage: 340 MG, QD
     Route: 048
     Dates: start: 19880707, end: 19890511
  6. ASPARA K [Concomitant]
     Active Substance: POTASSIUM ASPARTATE
     Indication: PRODUCT USED FOR UNKNOWN INDICATION
     Dosage: 900 MG, QD
     Route: 048
     Dates: start: 19881019, end: 19890403
  7. CATALIN [Concomitant]
     Active Substance: PIRENOXINE
     Indication: PRODUCT USED FOR UNKNOWN INDICATION
     Dosage: 3 DF, QD
     Route: 031
  8. KOLANTYL [Concomitant]
     Active Substance: DICYCLOMINE HYDROCHLORIDE
     Indication: PRODUCT USED FOR UNKNOWN INDICATION
     Dosage: 3 G, QD
     Route: 048
     Dates: start: 19880707
  9. FLUMETHOLON [Concomitant]
     Active Substance: FLUOROMETHOLONE
     Indication: BEHCET^S SYNDROME
     Route: 031
     Dates: start: 19880707, end: 19890708
  10. NEPTAZANE [Concomitant]
     Active Substance: METHAZOLAMIDE
     Indication: PRODUCT USED FOR UNKNOWN INDICATION
     Dosage: 150 MG, QD
     Route: 048
     Dates: start: 19881019, end: 19890403

REACTIONS (1)
  - Behcet^s syndrome [Recovered/Resolved with Sequelae]
